FAERS Safety Report 8613477-2 (Version None)
Quarter: 2012Q3

REPORT INFORMATION
  Report Type: 
  Country: None (occurrence: None)
  Receive Date: 20120823
  Receipt Date: 20120807
  Transmission Date: 20120928
  Serious: Yes (Hospitalization, Other)
  Sender: FDA-Public Use
  Company Number: US-009507513-1205USA01766

PATIENT

DRUGS (3)
  1. FOSAMAX [Suspect]
     Dosage: 70 MG, QW
     Route: 048
     Dates: start: 20080303
  2. FOSAMAX [Suspect]
     Indication: OSTEOPOROSIS PROPHYLAXIS
     Dosage: 70 MG, QW
     Route: 048
     Dates: start: 20040101, end: 20110109
  3. ALENDRONATE SODIUM [Suspect]
     Indication: OSTEOPOROSIS PROPHYLAXIS
     Dosage: 70 MG, QW
     Route: 048
     Dates: start: 20080303

REACTIONS (20)
  - INSOMNIA [None]
  - DEMENTIA ALZHEIMER'S TYPE [None]
  - MEMORY IMPAIRMENT [None]
  - OSTEOPENIA [None]
  - MAMMOGRAM ABNORMAL [None]
  - FEMUR FRACTURE [None]
  - INTESTINAL POLYP [None]
  - OSTEOPOROSIS [None]
  - TRANSFUSION [None]
  - ARTHRITIS [None]
  - BLISTER [None]
  - EXTRASYSTOLES [None]
  - ANAEMIA POSTOPERATIVE [None]
  - PATELLA FRACTURE [None]
  - HEAT STROKE [None]
  - ANXIETY [None]
  - LOW TURNOVER OSTEOPATHY [None]
  - DEPRESSION [None]
  - FALL [None]
  - ARTHRALGIA [None]
